FAERS Safety Report 9300102 (Version 2)
Quarter: 2013Q2

REPORT INFORMATION
  Report Type: Spontaneous
  Country: US (occurrence: US)
  Receive Date: 20130521
  Receipt Date: 20130521
  Transmission Date: 20140414
  Serious: No
  Sender: FDA-Public Use
  Company Number: -MYLANLABS-2012S1019178

PATIENT
  Age: 43 Year
  Sex: Male

DRUGS (9)
  1. AMITRIPTYLINE HYDROCHLORIDE TABLETS, USP [Suspect]
     Indication: INSOMNIA
     Route: 048
     Dates: start: 20120730, end: 20120731
  2. AMITRIPTYLINE HYDROCHLORIDE TABLETS, USP [Suspect]
     Indication: INSOMNIA
     Route: 048
     Dates: start: 20120730, end: 20120731
  3. AMITRIPTYLINE HYDROCHLORIDE TABLETS, USP [Suspect]
     Indication: DEPRESSION
     Route: 048
     Dates: start: 20120730, end: 20120731
  4. AMITRIPTYLINE HYDROCHLORIDE TABLETS, USP [Suspect]
     Indication: INSOMNIA
     Dosage: 1/2 TABLET QHS
     Route: 048
     Dates: start: 20120731, end: 20120801
  5. AMITRIPTYLINE HYDROCHLORIDE TABLETS, USP [Suspect]
     Indication: INSOMNIA
     Dosage: 1/2 TABLET QHS
     Route: 048
     Dates: start: 20120731, end: 20120801
  6. AMITRIPTYLINE HYDROCHLORIDE TABLETS, USP [Suspect]
     Indication: DEPRESSION
     Dosage: 1/2 TABLET QHS
     Route: 048
     Dates: start: 20120731, end: 20120801
  7. SOMA [Concomitant]
     Indication: MUSCLE RELAXANT THERAPY
     Dosage: TID PRN
     Route: 048
  8. OXYCONTIN [Concomitant]
     Indication: PAIN
     Dosage: 10/325MG
     Route: 048
  9. GABAPENTIN [Concomitant]
     Indication: NEURALGIA
     Route: 048

REACTIONS (7)
  - Injury [Recovered/Resolved]
  - Somnolence [Recovered/Resolved]
  - Amnesia [Recovered/Resolved]
  - Somnambulism [Recovered/Resolved]
  - Gynaecomastia [Not Recovered/Not Resolved]
  - Visual acuity reduced [Recovered/Resolved]
  - Vision blurred [Not Recovered/Not Resolved]
